FAERS Safety Report 5701267-X (Version None)
Quarter: 2008Q2

REPORT INFORMATION
  Report Type: 
  Country: None (occurrence: None)
  Receive Date: 20080410
  Receipt Date: 20080331
  Transmission Date: 20081010
  Serious: Yes (Hospitalization)
  Sender: FDA-Public Use
  Company Number: US-PFIZER INC-2008028454

PATIENT
  Sex: Male
  Weight: 65.909 kg

DRUGS (2)
  1. TIKOSYN [Suspect]
     Indication: CARDIAC DISORDER
  2. TENORMIN [Concomitant]

REACTIONS (2)
  - BACK DISORDER [None]
  - BACK PAIN [None]
